FAERS Safety Report 7819777-8 (Version None)
Quarter: 2011Q4

REPORT INFORMATION
  Report Type: 
  Country: None (occurrence: None)
  Receive Date: 20111018
  Receipt Date: 20110310
  Transmission Date: 20120403
  Serious: No
  Sender: FDA-Public Use
  Company Number: US-ASTRAZENECA-2011SE13901

PATIENT
  Age: 79 Year
  Sex: Female

DRUGS (1)
  1. SYMBICORT [Suspect]
     Indication: ASTHMA
     Dosage: 160/4.5 UG, FREQUENCY: UNKNOWN.
     Route: 055
     Dates: start: 20110217, end: 20110308

REACTIONS (4)
  - FLATULENCE [None]
  - RASH [None]
  - FACE OEDEMA [None]
  - NAUSEA [None]
